FAERS Safety Report 5627237-8 (Version None)
Quarter: 2008Q1

REPORT INFORMATION
  Report Type: 
  Country: None (occurrence: None)
  Receive Date: 20080128
  Receipt Date: 20071205
  Transmission Date: 20080703
  Serious: Yes (Death, Hospitalization, Other)
  Sender: FDA-Public Use
  Company Number: CLOF-10717

PATIENT
  Sex: Male

DRUGS (1)
  1. CLOLAR [Suspect]

REACTIONS (2)
  - HYPERBILIRUBINAEMIA [None]
  - PNEUMONIA FUNGAL [None]
